FAERS Safety Report 8457166-6 (Version None)
Quarter: 2012Q2

REPORT INFORMATION
  Report Type: 
  Country: None (occurrence: None)
  Receive Date: 20120621
  Receipt Date: 20120611
  Transmission Date: 20120825
  Serious: Yes (Death, Hospitalization)
  Sender: FDA-Public Use
  Company Number: US-ACTELION-A-US2012-62946

PATIENT

DRUGS (3)
  1. TRACLEER [Suspect]
     Indication: PULMONARY ARTERIAL HYPERTENSION
     Dosage: UNK
     Route: 048
     Dates: start: 20110224
  2. CALCIUM CHANNEL BLOCKERS [Concomitant]
  3. VIAGRA [Concomitant]

REACTIONS (2)
  - RESPIRATORY FAILURE [None]
  - PULMONARY ARTERIAL HYPERTENSION [None]
